FAERS Safety Report 8832958 (Version 1)
Quarter: 2012Q4

REPORT INFORMATION
  Report Type: 
  Country: US (occurrence: US)
  Receive Date: 20121010
  Receipt Date: 20121010
  Transmission Date: 20130627
  Serious: No
  Sender: FDA-Public Use
  Company Number: US-B.I. PHARMACEUTICALS,INC./RIDGEFIELD-2012-BP-23837BP

PATIENT

DRUGS (1)
  1. PRADAXA [Suspect]
     Route: 048
     Dates: start: 2011

REACTIONS (6)
  - Oesophageal irritation [Unknown]
  - Dyspepsia [Unknown]
  - Retching [Unknown]
  - Vomiting [Unknown]
  - Discomfort [Unknown]
  - Dysphagia [Unknown]
